FAERS Safety Report 6663843-X (Version None)
Quarter: 2010Q2

REPORT INFORMATION
  Report Type: 
  Country: None (occurrence: None)
  Receive Date: 20100401
  Receipt Date: 20100323
  Transmission Date: 20101027
  Serious: Yes (Hospitalization, Other)
  Sender: FDA-Public Use
  Company Number: JP-JNJFOC-20040502107

PATIENT
  Sex: Male
  Weight: 80 kg

DRUGS (31)
  1. LEUSTATIN [Suspect]
     Indication: HAIRY CELL LEUKAEMIA
     Route: 041
     Dates: start: 20030926, end: 20100219
  2. LEUSTATIN [Suspect]
     Route: 041
     Dates: start: 20030926, end: 20100219
  3. LEUSTATIN [Suspect]
     Route: 041
     Dates: start: 20030926, end: 20100219
  4. CRAVIT [Suspect]
     Indication: UPPER RESPIRATORY TRACT INFLAMMATION
     Route: 048
  5. LOXONIN [Suspect]
     Indication: PYREXIA
     Route: 048
  6. MINOCYCLINE HCL [Suspect]
     Indication: PYREXIA
     Route: 041
  7. FUNGUARD [Suspect]
     Indication: PYREXIA
     Route: 041
  8. FUNGUARD [Suspect]
     Route: 041
  9. MEROPENEM [Suspect]
     Indication: PYREXIA
     Route: 041
  10. MEROPENEM [Suspect]
     Route: 041
  11. FIRSTCIN [Suspect]
     Indication: PYREXIA
     Route: 041
  12. AMIKACIN SULFATE [Suspect]
     Indication: PYREXIA
     Route: 041
  13. AMIKACIN SULFATE [Suspect]
     Route: 041
  14. MYCOSYST [Suspect]
     Indication: ANTIFUNGAL PROPHYLAXIS
     Route: 048
  15. BAKTAR [Suspect]
     Indication: ANTIFUNGAL PROPHYLAXIS
     Route: 048
  16. PL [Suspect]
     Indication: UPPER RESPIRATORY TRACT INFLAMMATION
     Route: 048
  17. NEUTROGIN [Concomitant]
     Route: 058
  18. NEUTROGIN [Concomitant]
     Route: 058
  19. NEUTROGIN [Concomitant]
     Route: 058
  20. DIFLUCAN [Concomitant]
     Indication: INFECTION PROPHYLAXIS
     Route: 048
  21. SULFAMETHOXAZOLE AND TRIMETHOPRIM [Concomitant]
     Indication: ANTIFUNGAL PROPHYLAXIS
     Route: 048
  22. SULFAMETHOXAZOLE AND TRIMETHOPRIM [Concomitant]
     Route: 048
  23. SULFAMETHOXAZOLE AND TRIMETHOPRIM [Concomitant]
     Indication: INFECTION PROPHYLAXIS
     Route: 048
  24. SULFAMETHOXAZOLE AND TRIMETHOPRIM [Concomitant]
     Route: 048
  25. ZOPICLONE [Concomitant]
     Indication: INSOMNIA
     Route: 048
  26. SELBEX [Concomitant]
     Indication: PROPHYLAXIS AGAINST GASTROINTESTINAL ULCER
     Route: 048
  27. FAMOTIDINE [Concomitant]
     Indication: GASTRITIS
     Route: 048
  28. MODACIN [Concomitant]
     Indication: PYREXIA
     Route: 041
  29. KYTRIL [Concomitant]
     Indication: PROPHYLAXIS OF NAUSEA AND VOMITING
     Route: 042
  30. SOLDEM [Concomitant]
     Indication: DIURETIC THERAPY
     Route: 041
  31. MEYLON [Concomitant]
     Indication: DIURETIC THERAPY
     Route: 041

REACTIONS (25)
  - ALANINE AMINOTRANSFERASE INCREASED [None]
  - ANAEMIA [None]
  - ASPARTATE AMINOTRANSFERASE INCREASED [None]
  - BLOOD ALKALINE PHOSPHATASE INCREASED [None]
  - BLOOD BILIRUBIN INCREASED [None]
  - C-REACTIVE PROTEIN INCREASED [None]
  - CONJUNCTIVITIS [None]
  - DECREASED APPETITE [None]
  - ELECTROLYTE IMBALANCE [None]
  - GAMMA-GLUTAMYLTRANSFERASE INCREASED [None]
  - GASTRITIS [None]
  - HAIRY CELL LEUKAEMIA [None]
  - HEPATIC STEATOSIS [None]
  - HYPOALBUMINAEMIA [None]
  - HYPOCALCAEMIA [None]
  - HYPOPROTEINAEMIA [None]
  - INSOMNIA [None]
  - LEUKOPENIA [None]
  - LYMPHOCYTE COUNT DECREASED [None]
  - MONOCYTE COUNT DECREASED [None]
  - PYREXIA [None]
  - THROMBOCYTOPENIA [None]
  - TRANSAMINASES INCREASED [None]
  - UPPER RESPIRATORY TRACT INFLAMMATION [None]
  - WHITE BLOOD CELL DISORDER [None]
